FAERS Safety Report 25495363 (Version 1)
Quarter: 2025Q2

REPORT INFORMATION
  Report Type: Spontaneous
  Country: US (occurrence: US)
  Receive Date: 20250630
  Receipt Date: 20250630
  Transmission Date: 20250716
  Serious: No
  Sender: ASCENT PHARMACEUTICALS INC
  Company Number: US-ASCENT-2025ASSPO00089

PATIENT

DRUGS (1)
  1. POTASSIUM CITRATE [Suspect]
     Active Substance: POTASSIUM CITRATE
     Indication: Product used for unknown indication
     Route: 065

REACTIONS (2)
  - Product residue present [Unknown]
  - Product physical issue [Unknown]
